FAERS Safety Report 18648681 (Version 1)
Quarter: 2020Q4

REPORT INFORMATION
  Report Type: Other
  Country: ES (occurrence: ES)
  Receive Date: 20201222
  Receipt Date: 20201222
  Transmission Date: 20210114
  Serious: Yes (Other)
  Sender: FDA-Public Use
  Company Number: ES-ROCHE-2675549

PATIENT

DRUGS (3)
  1. SOMATROPIN. [Suspect]
     Active Substance: SOMATROPIN
     Indication: SHORT STATURE
  2. SOMATROPIN. [Suspect]
     Active Substance: SOMATROPIN
     Indication: SMALL FOR DATES BABY
  3. SOMATROPIN. [Suspect]
     Active Substance: SOMATROPIN
     Indication: GROWTH HORMONE DEFICIENCY
     Route: 065

REACTIONS (15)
  - Colorectal cancer [Unknown]
  - Arteriosclerosis [Unknown]
  - Idiopathic intracranial hypertension [Unknown]
  - Neoplasm malignant [Unknown]
  - Oedema [Unknown]
  - Myalgia [Unknown]
  - Hodgkin^s disease [Unknown]
  - Diabetes mellitus [Unknown]
  - Body mass index increased [Unknown]
  - Arthralgia [Unknown]
  - Paraesthesia [Unknown]
  - Carpal tunnel syndrome [Unknown]
  - Waist circumference increased [Unknown]
  - Lipoprotein increased [Unknown]
  - Retinopathy [Unknown]
